FAERS Safety Report 9532065 (Version 1)
Quarter: 2013Q3

REPORT INFORMATION
  Report Type: Spontaneous
  Country: LB (occurrence: LB)
  Receive Date: 20130918
  Receipt Date: 20130918
  Transmission Date: 20140515
  Serious: Yes (Other)
  Sender: FDA-Public Use
  Company Number: LB-BAXTER-2013BAX036367

PATIENT
  Age: 8 Year
  Sex: Male

DRUGS (3)
  1. ENDOXAN VIALS 1G VIAL [Suspect]
     Indication: EWING^S SARCOMA
     Route: 042
  2. UROMITEXAN [Suspect]
     Indication: PROPHYLAXIS URINARY TRACT INFECTION
     Route: 065
  3. TOPOTECAN [Suspect]
     Indication: EWING^S SARCOMA
     Route: 042

REACTIONS (1)
  - Cystitis haemorrhagic [Unknown]
